FAERS Safety Report 8836652 (Version 1)
Quarter: 2012Q4

REPORT INFORMATION
  Report Type: Spontaneous
  Country: GB (occurrence: None)
  Receive Date: 20121010
  Receipt Date: 20121010
  Transmission Date: 20130627
  Serious: Yes (Other)
  Sender: FDA-Public Use
  Company Number: GER/UKI/12/0026112

PATIENT
  Age: 71 Year
  Sex: Female
  Weight: 75.8 kg

DRUGS (5)
  1. CLOPIDOGREL [Suspect]
     Indication: DRUG USE FOR UNKNOWN INDICATION
     Dates: start: 20120528
  2. ATORVASTATIN (ATORVASTATIN) [Concomitant]
  3. HYOSCINE BUTYLBROMIDE (HYOSCINE BUTYLBROMIDE) [Concomitant]
  4. LERCANIDIPINE HYDROCHLORIDE (LERCANIDIPINE HYDROCHLORIDE) [Concomitant]
  5. RANITIDINE (RANITIDINE) [Concomitant]

REACTIONS (1)
  - Paraesthesia [None]
